FAERS Safety Report 11840431 (Version 4)
Quarter: 2016Q1

REPORT INFORMATION
  Report Type: Report from Study
  Country: US (occurrence: US)
  Receive Date: 20151216
  Receipt Date: 20160122
  Transmission Date: 20160525
  Serious: Yes (Life-Threatening, Hospitalization)
  Sender: FDA-Public Use
  Company Number: US-NOVOPROD-473698

PATIENT
  Age: 56 Year
  Sex: Female
  Weight: 128.6 kg

DRUGS (5)
  1. LANTUS [Suspect]
     Active Substance: INSULIN GLARGINE
     Dosage: 58 U, QD
     Route: 058
     Dates: start: 20150417
  2. NOVORAPID [Suspect]
     Active Substance: INSULIN ASPART
     Indication: TYPE 2 DIABETES MELLITUS
     Dosage: 46 U, QD
     Route: 058
     Dates: start: 20140410, end: 20150407
  3. NOVORAPID [Suspect]
     Active Substance: INSULIN ASPART
     Dosage: 46 U, QD
     Route: 058
     Dates: start: 20150417
  4. LANTUS [Suspect]
     Active Substance: INSULIN GLARGINE
     Indication: TYPE 2 DIABETES MELLITUS
     Dosage: 58 U, QD
     Route: 058
     Dates: start: 20140410, end: 20150407
  5. CIPROFLOXACIN. [Concomitant]
     Active Substance: CIPROFLOXACIN
     Indication: URINARY TRACT INFECTION
     Dosage: 500 MG, BID
     Route: 048

REACTIONS (1)
  - Gout [Recovered/Resolved]

NARRATIVE: CASE EVENT DATE: 20150405
